FAERS Safety Report 6554501-0 (Version None)
Quarter: 2010Q1

REPORT INFORMATION
  Report Type: 
  Country: None (occurrence: None)
  Receive Date: 20100122
  Receipt Date: 20100112
  Transmission Date: 20100710
  Serious: Yes (Hospitalization, Other)
  Sender: FDA-Public Use
  Company Number: A-US2010-33212

PATIENT
  Age: 66 Year
  Sex: Female

DRUGS (9)
  1. TRACLEER [Suspect]
     Indication: PULMONARY ARTERIAL HYPERTENSION
     Dosage: 125 MG, BID, ORAL; 62.5 MG, BID, ORAL
     Route: 048
     Dates: start: 20090601, end: 20090629
  2. TRACLEER [Suspect]
     Indication: PULMONARY ARTERIAL HYPERTENSION
     Dosage: 125 MG, BID, ORAL; 62.5 MG, BID, ORAL
     Route: 048
     Dates: start: 20090630, end: 20091119
  3. TRACLEER [Suspect]
     Indication: PULMONARY ARTERIAL HYPERTENSION
     Dosage: 125 MG, BID, ORAL; 62.5 MG, BID, ORAL
     Route: 048
     Dates: start: 20091120, end: 20091220
  4. CIALIS [Concomitant]
  5. WARFARIN SODIUM [Concomitant]
  6. INFLIXIMAB (INFLIXIMAB) [Concomitant]
  7. TRAMADOL HCL [Concomitant]
  8. ASCORBIC ACID [Concomitant]
  9. VITAMIN E [Concomitant]

REACTIONS (6)
  - CARDIAC PACEMAKER INSERTION [None]
  - HAEMOGLOBIN DECREASED [None]
  - RED BLOOD CELL COUNT DECREASED [None]
  - SICK SINUS SYNDROME [None]
  - SYNCOPE [None]
  - TRANSFUSION [None]
